FAERS Safety Report 9231844 (Version 1)
Quarter: 2013Q2

REPORT INFORMATION
  Report Type: Report from Study
  Country: US (occurrence: US)
  Receive Date: 20130415
  Receipt Date: 20130415
  Transmission Date: 20140414
  Serious: Yes (Other)
  Sender: FDA-Public Use
  Company Number: US-ABBOTT-13P-163-1074250-00

PATIENT
  Sex: Male
  Weight: 79.45 kg

DRUGS (4)
  1. HUMIRA [Suspect]
     Indication: CROHN^S DISEASE
     Route: 058
     Dates: start: 201203
  2. ATRIPLA [Concomitant]
     Indication: HIV INFECTION
  3. ALPRAZOLAM [Concomitant]
     Indication: INSOMNIA
  4. ALPRAZOLAM [Concomitant]
     Indication: ANXIETY

REACTIONS (4)
  - Thrombophlebitis superficial [Recovering/Resolving]
  - Pain in extremity [Recovered/Resolved]
  - Erythema [Recovered/Resolved]
  - Irritable bowel syndrome [Unknown]
